FAERS Safety Report 8030986-8 (Version None)
Quarter: 2012Q1

REPORT INFORMATION
  Report Type: 
  Country: None (occurrence: None)
  Receive Date: 20120109
  Receipt Date: 20120103
  Transmission Date: 20120608
  Serious: Yes (Disabling, Other)
  Sender: FDA-Public Use
  Company Number: US-CELGENEUS-163-21880-11111439

PATIENT
  Sex: Female

DRUGS (12)
  1. ACETAMINOPHEN [Concomitant]
     Route: 065
  2. OXYCONTIN [Concomitant]
     Dosage: 15 MILLIGRAM
     Route: 065
  3. REVLIMID [Suspect]
     Indication: MULTIPLE MYELOMA
     Dosage: 25 MILLIGRAM
     Route: 048
     Dates: start: 20111005, end: 20110101
  4. SYNTHROID [Concomitant]
     Route: 065
  5. DECADRON [Concomitant]
     Dosage: 40 MILLIGRAM
     Route: 065
     Dates: start: 20111005
  6. LACTULOSE [Concomitant]
     Route: 065
  7. LOVENOX [Concomitant]
     Dosage: 40 MILLIGRAM
     Route: 058
  8. PRILOSEC [Concomitant]
     Route: 065
  9. OXYCODONE HCL [Concomitant]
     Route: 065
  10. BISACODYL [Concomitant]
     Route: 065
  11. MIRALAX [Concomitant]
     Route: 065
  12. MILK OF MAGNESIA TAB [Concomitant]
     Route: 065

REACTIONS (4)
  - MULTIPLE MYELOMA [None]
  - PATHOLOGICAL FRACTURE [None]
  - FALL [None]
  - FATIGUE [None]
